FAERS Safety Report 24787211 (Version 2)
Quarter: 2025Q2

REPORT INFORMATION
  Report Type: Spontaneous
  Country: JP (occurrence: JP)
  Receive Date: 20241230
  Receipt Date: 20250604
  Transmission Date: 20250717
  Serious: Yes (Other)
  Sender: SOLARIS PHARMA CORPORATION
  Company Number: JP-SPC-000537

PATIENT
  Age: 73 Year
  Sex: Male

DRUGS (3)
  1. METRONIDAZOLE [Suspect]
     Active Substance: METRONIDAZOLE
     Indication: Amoebic colitis
     Route: 065
  2. PAROMOMYCIN [Concomitant]
     Active Substance: PAROMOMYCIN
     Indication: Amoebic colitis
     Route: 065
  3. METRONIDAZOLE [Suspect]
     Active Substance: METRONIDAZOLE
     Indication: Amoebic colitis
     Route: 065

REACTIONS (2)
  - Product dose omission issue [Unknown]
  - Drug ineffective for unapproved indication [Unknown]
